FAERS Safety Report 16531418 (Version 1)
Quarter: 2019Q3

REPORT INFORMATION
  Report Type: Other
  Country: US (occurrence: US)
  Receive Date: 20190704
  Receipt Date: 20190704
  Transmission Date: 20191004
  Serious: Yes (Life-Threatening, Hospitalization)
  Sender: FDA-Public Use
  Company Number: US-EYWA PHARMA INC.-2070358

PATIENT
  Age: 45 Year
  Sex: Male

DRUGS (6)
  1. GABAPENTIN. [Suspect]
     Active Substance: GABAPENTIN
     Route: 048
  2. MELOXICAM. [Suspect]
     Active Substance: MELOXICAM
     Route: 048
  3. BACLOFEN. [Suspect]
     Active Substance: BACLOFEN
     Indication: PRODUCT USED FOR UNKNOWN INDICATION
     Route: 048
  4. PRILOCAINE [Suspect]
     Active Substance: PRILOCAINE
     Route: 048
  5. AMITRIPTYLINE [Suspect]
     Active Substance: AMITRIPTYLINE
     Route: 048
  6. LIDOCAINE. [Suspect]
     Active Substance: LIDOCAINE
     Route: 048

REACTIONS (6)
  - Depressed level of consciousness [Recovering/Resolving]
  - Electrocardiogram QRS complex prolonged [Recovered/Resolved]
  - Coma [Recovering/Resolving]
  - Intentional overdose [Unknown]
  - Respiratory failure [Unknown]
  - Toxicity to various agents [Unknown]
